FAERS Safety Report 16162541 (Version 1)
Quarter: 2019Q2

REPORT INFORMATION
  Report Type: Report from Study
  Country: BR (occurrence: BR)
  Receive Date: 20190405
  Receipt Date: 20190405
  Transmission Date: 20190711
  Serious: Yes (Other)
  Sender: FDA-Public Use
  Company Number: PHHY2019BR075078

PATIENT
  Sex: Female

DRUGS (1)
  1. DIOVAN HCT [Suspect]
     Active Substance: HYDROCHLOROTHIAZIDE\VALSARTAN
     Indication: HYPERTENSION
     Dosage: (HYDROCHLOROTHIAZIDE 12.5 MG, VALSARTAN 160 MG), QD
     Route: 065

REACTIONS (13)
  - Drug intolerance [Unknown]
  - Drug dependence [Unknown]
  - Feeling abnormal [Unknown]
  - Blood pressure increased [Unknown]
  - Visual impairment [Unknown]
  - Nervousness [Unknown]
  - General physical health deterioration [Unknown]
  - Stress [Unknown]
  - Bone disorder [Unknown]
  - Accident at home [Unknown]
  - Cardiac disorder [Unknown]
  - Rebound effect [Unknown]
  - Fear [Unknown]
